FAERS Safety Report 23551641 (Version 1)
Quarter: 2024Q1

REPORT INFORMATION
  Report Type: Spontaneous
  Country: US (occurrence: US)
  Receive Date: 20240222
  Receipt Date: 20240222
  Transmission Date: 20240409
  Serious: Yes (Hospitalization)
  Sender: FDA-Public Use
  Company Number: US-STRIDES ARCOLAB LIMITED-2023SP015087

PATIENT
  Age: 60 Year
  Sex: Male

DRUGS (2)
  1. CISPLATIN [Suspect]
     Active Substance: CISPLATIN
     Indication: Neuroendocrine tumour of the lung
     Dosage: UNK, CYCLICAL (4 CYCLES)
     Route: 065
  2. ETOPOSIDE [Suspect]
     Active Substance: ETOPOSIDE
     Indication: Neuroendocrine tumour of the lung
     Dosage: UNK, CYCLICAL (4 CYCLES)
     Route: 065

REACTIONS (3)
  - Neuroendocrine carcinoma metastatic [Unknown]
  - Drug ineffective [Unknown]
  - Off label use [Unknown]
